FAERS Safety Report 22372432 (Version 1)
Quarter: 2023Q2

REPORT INFORMATION
  Report Type: Spontaneous
  Country: US (occurrence: US)
  Receive Date: 20230526
  Receipt Date: 20230526
  Transmission Date: 20230722
  Serious: No
  Sender: FDA-Public Use
  Company Number: US-CYCLE PHARMACEUTICALS LTD-2023-CYC-000025

PATIENT

DRUGS (4)
  1. NITYR [Suspect]
     Active Substance: NITISINONE
     Indication: Product used for unknown indication
     Dosage: 2 MG, 1 TABLET , EVERY OTHER DAY
     Route: 048
  2. PROZAC [Concomitant]
     Active Substance: FLUOXETINE HYDROCHLORIDE
     Indication: Product used for unknown indication
     Dosage: 10 MG
     Route: 065
  3. MELOXICAM [Concomitant]
     Active Substance: MELOXICAM
     Indication: Product used for unknown indication
     Dosage: 15 MG
     Route: 065
  4. LEXAPRO [Concomitant]
     Active Substance: ESCITALOPRAM OXALATE
     Indication: Product used for unknown indication
     Dosage: 10 MG
     Route: 065

REACTIONS (3)
  - Arthralgia [Unknown]
  - Arthralgia [Unknown]
  - Inappropriate schedule of product administration [Unknown]
